FAERS Safety Report 5198459-8 (Version None)
Quarter: 2006Q4

REPORT INFORMATION
  Report Type: 
  Country: None (occurrence: None)
  Receive Date: 20061229
  Receipt Date: 20061220
  Transmission Date: 20070319
  Serious: Yes (Hospitalization)
  Sender: FDA-Public Use
  Company Number: T06-USA-04880-01

PATIENT
  Age: 85 Year
  Sex: Male
  Weight: 83.0083 kg

DRUGS (9)
  1. MEMANTINE HCL [Suspect]
     Indication: CEREBRAL ATROPHY
     Dosage: 10 MG QD PO
     Route: 048
     Dates: start: 20061006, end: 20061026
  2. DONEPEZIL HCL [Concomitant]
  3. WARFARIN SODIUM [Concomitant]
  4. SOTALOL HYDROCHLORIDE [Concomitant]
  5. GLYBURIDE AND METFORMIN HCL [Concomitant]
  6. ACTOS [Concomitant]
  7. SIMVASTATIN [Concomitant]
  8. MULTI-VITAMIN [Concomitant]
  9. TERAZOSIN HCL [Concomitant]

REACTIONS (24)
  - AORTIC DILATATION [None]
  - BLOOD UREA INCREASED [None]
  - BREATH SOUNDS ABNORMAL [None]
  - CARDIAC PACEMAKER INSERTION [None]
  - DILATATION ATRIAL [None]
  - FALL [None]
  - FEELING ABNORMAL [None]
  - GLOMERULAR FILTRATION RATE DECREASED [None]
  - HAEMATOCRIT DECREASED [None]
  - HAEMOGLOBIN DECREASED [None]
  - IMPLANT SITE PAIN [None]
  - INTERNATIONAL NORMALISED RATIO INCREASED [None]
  - LYMPHOCYTE COUNT DECREASED [None]
  - MITRAL VALVE INCOMPETENCE [None]
  - PCO2 INCREASED [None]
  - POST PROCEDURAL COMPLICATION [None]
  - PROTHROMBIN TIME PROLONGED [None]
  - PULMONARY VALVE INCOMPETENCE [None]
  - RED CELL DISTRIBUTION WIDTH INCREASED [None]
  - SICK SINUS SYNDROME [None]
  - TENDERNESS [None]
  - TRICUSPID VALVE INCOMPETENCE [None]
  - VENTRICULAR DYSFUNCTION [None]
  - VENTRICULAR HYPERTROPHY [None]
